FAERS Safety Report 5024339-4 (Version None)
Quarter: 2006Q2

REPORT INFORMATION
  Report Type: 
  Country: None (occurrence: None)
  Receive Date: 20060426
  Receipt Date: 20060308
  Transmission Date: 20061013
  Serious: Yes (Other)
  Sender: FDA-Public Use
  Company Number: 2006034363

PATIENT
  Age: 49 Year
  Sex: Female
  Weight: 63.5036 kg

DRUGS (10)
  1. LYRICA [Suspect]
     Indication: NEUROPATHY
     Dosage: 200 MG (100 MG,2 IN 1D)
     Dates: start: 20060301
  2. LYRICA [Suspect]
     Indication: PAIN
     Dosage: 200 MG (100 MG,2 IN 1D)
     Dates: start: 20060301
  3. NEURONTIN [Suspect]
     Indication: NEUROPATHY
     Dates: start: 20040101
  4. NEURONTIN [Suspect]
     Indication: PAIN
     Dates: start: 20040101
  5. LORTAB [Concomitant]
  6. CELEXA [Concomitant]
  7. MAXZIDE (HYROCHLOROTHIAZIDE, TRIAMTERENE) [Concomitant]
  8. TRAZODONE HCL [Concomitant]
  9. SEROQUEL [Concomitant]
  10. AMBIEN [Concomitant]

REACTIONS (2)
  - PAIN [None]
  - RESTLESS LEGS SYNDROME [None]
